FAERS Safety Report 24938951 (Version 2)
Quarter: 2025Q2

REPORT INFORMATION
  Report Type: Spontaneous
  Country: DE (occurrence: DE)
  Receive Date: 20250206
  Receipt Date: 20250416
  Transmission Date: 20250716
  Serious: Yes (Hospitalization, Other)
  Sender: MYLAN
  Company Number: None

PATIENT
  Age: 60 Year
  Sex: Female
  Weight: 85 kg

DRUGS (12)
  1. SERTRALINE HYDROCHLORIDE [Suspect]
     Active Substance: SERTRALINE HYDROCHLORIDE
     Indication: Depression
  2. SERTRALINE HYDROCHLORIDE [Suspect]
     Active Substance: SERTRALINE HYDROCHLORIDE
     Route: 048
  3. SERTRALINE HYDROCHLORIDE [Suspect]
     Active Substance: SERTRALINE HYDROCHLORIDE
     Route: 048
  4. SERTRALINE HYDROCHLORIDE [Suspect]
     Active Substance: SERTRALINE HYDROCHLORIDE
  5. ZEPOSIA [Suspect]
     Active Substance: OZANIMOD HYDROCHLORIDE
     Indication: Colitis ulcerative
  6. ZEPOSIA [Suspect]
     Active Substance: OZANIMOD HYDROCHLORIDE
     Route: 048
  7. ZEPOSIA [Suspect]
     Active Substance: OZANIMOD HYDROCHLORIDE
     Route: 048
  8. ZEPOSIA [Suspect]
     Active Substance: OZANIMOD HYDROCHLORIDE
  9. MESALAMINE [Suspect]
     Active Substance: MESALAMINE
     Indication: Colitis ulcerative
  10. MESALAMINE [Suspect]
     Active Substance: MESALAMINE
     Route: 048
  11. MESALAMINE [Suspect]
     Active Substance: MESALAMINE
     Route: 048
  12. MESALAMINE [Suspect]
     Active Substance: MESALAMINE

REACTIONS (2)
  - Acute myeloid leukaemia [Not Recovered/Not Resolved]
  - Leukopenia [Unknown]

NARRATIVE: CASE EVENT DATE: 20241218
